FAERS Safety Report 14236991 (Version 1)
Quarter: 2017Q4

REPORT INFORMATION
  Report Type: Spontaneous
  Country: DE (occurrence: DE)
  Receive Date: 20171129
  Receipt Date: 20171129
  Transmission Date: 20180321
  Serious: Yes (Other)
  Sender: FDA-Public Use
  Company Number: DE-TEVA-2017-DE-828805

PATIENT

DRUGS (1)
  1. GALZIN [Suspect]
     Active Substance: ZINC ACETATE
     Indication: HEPATO-LENTICULAR DEGENERATION
     Dosage: 25 MG DAILY DIVIDED IN 2 DOSES
     Route: 065

REACTIONS (1)
  - Gastritis erosive [Recovered/Resolved]
